FAERS Safety Report 10313409 (Version 1)
Quarter: 2014Q3

REPORT INFORMATION
  Report Type: Spontaneous
  Country: CA (occurrence: None)
  Receive Date: 20140716
  Receipt Date: 20140716
  Transmission Date: 20150326
  Serious: Yes (Other)
  Sender: FDA-Public Use
  Company Number: SYM-2014-23210

PATIENT
  Age: 56 Year
  Sex: Male
  Weight: 104 kg

DRUGS (7)
  1. WELLBUTRIN XL [Suspect]
     Active Substance: BUPROPION HYDROCHLORIDE
     Indication: PRODUCT USED FOR UNKNOWN INDICATION
  2. CLONAZEPAM. [Suspect]
     Active Substance: CLONAZEPAM
     Indication: PRODUCT USED FOR UNKNOWN INDICATION
     Route: 048
  3. MILK THISTLE (OTHER THERAPETUIC PRODUCTS)(NULL) [Concomitant]
  4. QUETIAPINE FUMARATE (QUETIAPINE FUMARATE) [Suspect]
     Active Substance: QUETIAPINE FUMARATE
     Indication: PRODUCT USED FOR UNKNOWN INDICATION
     Route: 048
  5. ECHINACEA PURPUREA(ESCHINACEA PURPUREA) [Concomitant]
  6. HORSE CHESTNUT EXTRACT (AESCULUS HIPPOCASTANUM EXTRACT)(AESCULUS HIPPOCASTANUM EXTRACT) [Concomitant]
  7. ESCITALOPRAM OXALATE (ESCITALOPRAM OXALATE) [Suspect]
     Active Substance: ESCITALOPRAM OXALATE
     Indication: PRODUCT USED FOR UNKNOWN INDICATION
     Route: 048

REACTIONS (14)
  - Dizziness [None]
  - Weight increased [None]
  - Erection increased [None]
  - Somnolence [None]
  - Nausea [None]
  - Suicidal ideation [None]
  - Tremor [None]
  - Increased appetite [None]
  - Muscular weakness [None]
  - Constipation [None]
  - Depression [None]
  - Dry mouth [None]
  - Tinnitus [None]
  - Fatigue [None]
